FAERS Safety Report 8391951-4 (Version None)
Quarter: 2012Q2

REPORT INFORMATION
  Report Type: 
  Country: None (occurrence: None)
  Receive Date: 20120529
  Receipt Date: 20120523
  Transmission Date: 20120825
  Serious: Yes (Other)
  Sender: FDA-Public Use
  Company Number: JP-GLAXOSMITHKLINE-B0803924A

PATIENT
  Sex: Female
  Weight: 37 kg

DRUGS (2)
  1. STOMACHICS + DIGESTIVES [Concomitant]
     Route: 065
  2. VALTREX [Suspect]
     Indication: ANTIVIRAL PROPHYLAXIS
     Dosage: 500MG PER DAY
     Route: 048
     Dates: start: 20110101

REACTIONS (3)
  - DIARRHOEA [None]
  - MELAENA [None]
  - WEIGHT DECREASED [None]
